FAERS Safety Report 22161007 (Version 1)
Quarter: 2023Q1

REPORT INFORMATION
  Report Type: Spontaneous
  Country: US (occurrence: US)
  Receive Date: 20230331
  Receipt Date: 20230331
  Transmission Date: 20230417
  Serious: Yes (Hospitalization, Other)
  Sender: FDA-Public Use
  Company Number: US-SA-SAC20230331000161

PATIENT
  Age: 78 Year
  Sex: Female

DRUGS (1)
  1. DUPIXENT [Suspect]
     Active Substance: DUPILUMAB
     Dosage: 400 MG; FREQUENCY: OTHER
     Route: 058

REACTIONS (2)
  - Loss of consciousness [Unknown]
  - Asthenia [Unknown]

NARRATIVE: CASE EVENT DATE: 20230201
